FAERS Safety Report 9812585 (Version 2)
Quarter: 2014Q1

REPORT INFORMATION
  Report Type: Spontaneous
  Country: FR (occurrence: FR)
  Receive Date: 20140113
  Receipt Date: 20140306
  Transmission Date: 20141002
  Serious: Yes (Hospitalization)
  Sender: FDA-Public Use
  Company Number: FR-MERCK-1401FRA000780

PATIENT
  Age: 77 Year
  Sex: Female

DRUGS (3)
  1. TIMOPTOL LP 0.50%, COLLYRE EN SOLUTION [Suspect]
     Indication: OCULAR HYPERTENSION
     Dosage: 1 GTT, QD
     Route: 047
     Dates: start: 20130620, end: 20131028
  2. TIMOPTOL LP 0.25%, COLLYRE EN SOLUTION [Concomitant]
     Indication: OCULAR HYPERTENSION
     Dosage: 1 GTT, QD
     Route: 047
     Dates: end: 20130620
  3. LANZOPRAZOL [Concomitant]
     Indication: PRODUCT USED FOR UNKNOWN INDICATION

REACTIONS (4)
  - Confusional state [Recovered/Resolved]
  - Orthostatic hypotension [Recovered/Resolved]
  - Fall [Recovered/Resolved]
  - Urticaria [Recovering/Resolving]
